FAERS Safety Report 8541005-9 (Version None)
Quarter: 2012Q3

REPORT INFORMATION
  Report Type: 
  Country: None (occurrence: None)
  Receive Date: 20120726
  Receipt Date: 20110815
  Transmission Date: 20120928
  Serious: No
  Sender: FDA-Public Use
  Company Number: US-ASTRAZENECA-2011SE48880

PATIENT
  Age: 47 Year
  Sex: Male
  Weight: 74.8 kg

DRUGS (3)
  1. GLIMEPIRIDE [Concomitant]
     Route: 048
  2. SEROQUEL XR [Suspect]
     Indication: BIPOLAR DISORDER
     Route: 048
     Dates: start: 20110501
  3. METFORMIN HYDROCHLORIDE [Concomitant]
     Indication: DIABETES MELLITUS
     Dosage: 2000 MG, TWOTIMES A DAY
     Route: 048

REACTIONS (5)
  - AGITATION [None]
  - ANXIETY [None]
  - HALLUCINATION [None]
  - INSOMNIA [None]
  - DRUG EFFECT DECREASED [None]
